FAERS Safety Report 14603854 (Version 1)
Quarter: 2018Q1

REPORT INFORMATION
  Report Type: Spontaneous
  Country: US (occurrence: US)
  Receive Date: 20180306
  Receipt Date: 20180306
  Transmission Date: 20180509
  Serious: No
  Sender: FDA-Public Use
  Company Number: US-AEGERION PHARMACEUTICAL, INC-AEGR003459

PATIENT
  Sex: Female
  Weight: 63.49 kg

DRUGS (1)
  1. MYALEPT [Suspect]
     Active Substance: METRELEPTIN
     Indication: LIPODYSTROPHY ACQUIRED
     Dosage: 5 MG, EVERY 12 HOURS
     Route: 058
     Dates: start: 2016

REACTIONS (1)
  - Injection site discomfort [Not Recovered/Not Resolved]
